FAERS Safety Report 5191647-6 (Version None)
Quarter: 2006Q4

REPORT INFORMATION
  Report Type: 
  Country: None (occurrence: None)
  Receive Date: 20061219
  Receipt Date: 20061205
  Transmission Date: 20070319
  Serious: Yes (Other)
  Sender: FDA-Public Use
  Company Number: 2006BH014908

PATIENT
  Sex: 0

DRUGS (1)
  1. DEXTRAN 40 10% IN NORMAL SALINE 0.9% [Suspect]
     Indication: DRUG USE FOR UNKNOWN INDICATION
     Dosage: 250 ML; AS NEEDED; IV
     Route: 042

REACTIONS (1)
  - SHOCK [None]
